FAERS Safety Report 13942153 (Version 1)
Quarter: 2017Q3

REPORT INFORMATION
  Report Type: Spontaneous
  Country: RU (occurrence: RU)
  Receive Date: 20170906
  Receipt Date: 20170906
  Transmission Date: 20171127
  Serious: Yes (Other)
  Sender: FDA-Public Use
  Company Number: RU-ABBVIE-17P-251-2094201-00

PATIENT
  Age: 16 Year
  Sex: Female

DRUGS (2)
  1. DEPAKINE [Suspect]
     Active Substance: VALPROATE SODIUM
     Indication: EPILEPSY
     Route: 048
  2. DEPAKINE [Suspect]
     Active Substance: VALPROATE SODIUM
     Route: 048
     Dates: end: 201707

REACTIONS (3)
  - Educational problem [Recovered/Resolved]
  - Ill-defined disorder [Recovered/Resolved]
  - Epilepsy [Unknown]
